FAERS Safety Report 5465471-0 (Version None)
Quarter: 2007Q3

REPORT INFORMATION
  Report Type: 
  Country: None (occurrence: None)
  Receive Date: 20070920
  Receipt Date: 20070920
  Transmission Date: 20080115
  Serious: No
  Sender: FDA-Public Use
  Company Number: None

PATIENT
  Age: 44 Year
  Sex: Female

DRUGS (1)
  1. ALKA-SELTZER PLUS DAY + NIGHT    BAYER [Suspect]
     Indication: NASOPHARYNGITIS
     Dates: start: 20070917, end: 20070917

REACTIONS (1)
  - PHARMACEUTICAL PRODUCT COMPLAINT [None]
